FAERS Safety Report 5204765-0 (Version None)
Quarter: 2007Q1

REPORT INFORMATION
  Report Type: 
  Country: None (occurrence: None)
  Receive Date: 20070110
  Receipt Date: 20060828
  Transmission Date: 20070707
  Serious: Yes (Other)
  Sender: FDA-Public Use
  Company Number: US-BRISTOL-MYERS SQUIBB COMPANY-13440425

PATIENT
  Age: 28 Year
  Sex: Female

DRUGS (2)
  1. ABILIFY [Suspect]
     Indication: SCHIZOPHRENIA, PARANOID TYPE
     Dates: start: 20031101, end: 20040701
  2. SEROQUEL [Suspect]

REACTIONS (11)
  - DEPRESSION [None]
  - HALLUCINATION, AUDITORY [None]
  - INCREASED APPETITE [None]
  - MENTAL IMPAIRMENT [None]
  - NASAL CONGESTION [None]
  - NECK PAIN [None]
  - PAIN IN EXTREMITY [None]
  - RHINORRHOEA [None]
  - SINUS DISORDER [None]
  - SUICIDAL IDEATION [None]
  - WEIGHT INCREASED [None]
